FAERS Safety Report 21549016 (Version 1)
Quarter: 2022Q4

REPORT INFORMATION
  Report Type: Spontaneous
  Country: US (occurrence: None)
  Receive Date: 20221102
  Receipt Date: 20221102
  Transmission Date: 20230113
  Serious: Yes (Hospitalization, Other)
  Sender: FDA-Public Use
  Company Number: None

PATIENT
  Age: 58 Year
  Sex: Male
  Weight: 92.1 kg

DRUGS (1)
  1. GLEOLAN [Suspect]
     Active Substance: AMINOLEVULINIC ACID HYDROCHLORIDE
     Indication: Glioma
     Dosage: FREQUENCY : ONCE;?
     Route: 048
     Dates: start: 20221101, end: 20221101

REACTIONS (1)
  - Apraxia [None]

NARRATIVE: CASE EVENT DATE: 20221101
